FAERS Safety Report 10564451 (Version 2)
Quarter: 2014Q4

REPORT INFORMATION
  Report Type: Spontaneous
  Country: JP (occurrence: JP)
  Receive Date: 20141104
  Receipt Date: 20141201
  Transmission Date: 20150529
  Serious: Yes (Other)
  Sender: FDA-Public Use
  Company Number: JP-ABBVIE-14P-087-1302088-00

PATIENT
  Age: 76 Year
  Sex: Male
  Weight: 70 kg

DRUGS (6)
  1. REMIFENTANIL HYDROCHLORIDE [Suspect]
     Active Substance: REMIFENTANIL HYDROCHLORIDE
     Indication: GENERAL ANAESTHESIA
     Dosage: 0.1-1 MG/HR
     Route: 042
     Dates: start: 20140512, end: 20140512
  2. FENTANYL CITRATE. [Suspect]
     Active Substance: FENTANYL CITRATE
     Indication: GENERAL ANAESTHESIA
     Dosage: 30 MCG-100 MCG/HR
     Route: 042
     Dates: start: 20140512, end: 20140512
  3. PROPOFOL. [Suspect]
     Active Substance: PROPOFOL
     Indication: GENERAL ANAESTHESIA
     Route: 042
     Dates: start: 20140512, end: 20140512
  4. ROCURONIUM BROMIDE. [Suspect]
     Active Substance: ROCURONIUM BROMIDE
     Indication: GENERAL ANAESTHESIA
     Dosage: 10-50 MG
     Route: 042
     Dates: start: 20140512, end: 20140512
  5. OXYGEN. [Suspect]
     Active Substance: OXYGEN
     Indication: GENERAL ANAESTHESIA
     Dosage: 1-6 L/MIN
     Route: 055
     Dates: start: 20140512, end: 20140512
  6. ULTANE [Suspect]
     Active Substance: SEVOFLURANE
     Indication: GENERAL ANAESTHESIA
     Route: 055
     Dates: start: 20140512, end: 20140512

REACTIONS (6)
  - Atelectasis [Recovering/Resolving]
  - Respiratory muscle weakness [Unknown]
  - Sputum retention [Unknown]
  - Anaesthetic complication [Unknown]
  - Respiratory depression [Unknown]
  - Hypoventilation [Unknown]

NARRATIVE: CASE EVENT DATE: 20140512
